FAERS Safety Report 18995430 (Version 1)
Quarter: 2021Q1

REPORT INFORMATION
  Report Type: Spontaneous
  Country: US (occurrence: US)
  Receive Date: 20210310
  Receipt Date: 20210310
  Transmission Date: 20210420
  Serious: No
  Sender: FDA-Public Use
  Company Number: US-TARO-2021TAR00063

PATIENT

DRUGS (1)
  1. AZELAIC ACID. [Suspect]
     Active Substance: AZELAIC ACID
     Indication: ROSACEA
     Dosage: BID, TOPICALLY ON THE NOSE AND CHEEKS
     Route: 061
     Dates: start: 202011

REACTIONS (6)
  - Drug ineffective [Unknown]
  - Erythema [Not Recovered/Not Resolved]
  - Burning sensation [Unknown]
  - Dry skin [Not Recovered/Not Resolved]
  - Pain [Unknown]
  - Condition aggravated [Unknown]
